FAERS Safety Report 15867798 (Version 3)
Quarter: 2019Q1

REPORT INFORMATION
  Report Type: Spontaneous
  Country: JP (occurrence: JP)
  Receive Date: 20190125
  Receipt Date: 20190308
  Transmission Date: 20190417
  Serious: Yes (Death, Hospitalization, Other)
  Sender: FDA-Public Use
  Company Number: JP-BAYER-2019-015321

PATIENT
  Age: 85 Year
  Sex: Male
  Weight: 55.8 kg

DRUGS (5)
  1. TRICHLORMETHIAZIDE [Concomitant]
     Active Substance: TRICHLORMETHIAZIDE
     Dosage: DAILY DOSE 0.5 MG
     Route: 048
     Dates: end: 20190202
  2. NEXAVAR [Suspect]
     Active Substance: SORAFENIB
     Indication: PAPILLARY THYROID CANCER
     Dosage: DAILY DOSE 600 MG
     Route: 048
     Dates: start: 20181220, end: 20190103
  3. TORASEMIDE [Concomitant]
     Active Substance: TORSEMIDE
     Dosage: DAILY DOSE 4 MG
     Route: 048
     Dates: end: 20190202
  4. DOXAZOSIN [Concomitant]
     Active Substance: DOXAZOSIN\DOXAZOSIN MESYLATE
     Dosage: DAILY DOSE 0.5 MG
     Route: 048
     Dates: end: 20190202
  5. THYRADIN [Concomitant]
     Active Substance: LEVOTHYROXINE
     Indication: HYPOTHYROIDISM
     Dosage: DAILY DOSE 150 MCG
     Route: 048
     Dates: start: 20171017, end: 20190202

REACTIONS (11)
  - Rhabdomyolysis [Recovered/Resolved]
  - Muscular weakness [Recovered/Resolved]
  - C-reactive protein increased [None]
  - Thyroid cancer [Fatal]
  - Myalgia [Recovered/Resolved]
  - Decreased appetite [Recovered/Resolved]
  - Myoglobinuria [Recovered/Resolved]
  - Pain in extremity [Recovered/Resolved]
  - Delirium [Recovered/Resolved]
  - Hepatic enzyme increased [None]
  - Blood creatine phosphokinase increased [Recovered/Resolved]

NARRATIVE: CASE EVENT DATE: 20190101
